FAERS Safety Report 9882800 (Version 2)
Quarter: 2014Q1

REPORT INFORMATION
  Report Type: Spontaneous
  Country: US (occurrence: US)
  Receive Date: 20140207
  Receipt Date: 20140212
  Transmission Date: 20141002
  Serious: Yes (Hospitalization, Disabling, Other)
  Sender: FDA-Public Use
  Company Number: US-TAKEDA-2014TUS000852

PATIENT
  Sex: 0

DRUGS (5)
  1. NESINA [Suspect]
     Indication: TYPE 2 DIABETES MELLITUS
     Dosage: 25 MG, QD
     Route: 048
     Dates: start: 20130917, end: 20131204
  2. CYMBALTA [Concomitant]
     Dosage: 30 MG, QD
  3. EXFORGE [Concomitant]
     Dosage: 320/10/75, QD
  4. SYNTHROID [Concomitant]
     Dosage: 88 MG, QD
  5. ZOCOR [Concomitant]
     Dosage: 40 MG, QD

REACTIONS (2)
  - Abdominal distension [Not Recovered/Not Resolved]
  - Hepatic failure [Not Recovered/Not Resolved]
